FAERS Safety Report 9234311 (Version 1)
Quarter: 2013Q2

REPORT INFORMATION
  Report Type: Report from Study
  Country: IT (occurrence: IT)
  Receive Date: 20130416
  Receipt Date: 20130416
  Transmission Date: 20140414
  Serious: Yes (Other)
  Sender: FDA-Public Use
  Company Number: IT-ROCHE-588630

PATIENT
  Age: 45 Year
  Sex: Female

DRUGS (7)
  1. RITUXIMAB [Suspect]
     Indication: ENDOCRINE OPHTHALMOPATHY
     Dosage: ONE DOSE - INFUSION
     Route: 065
  2. RITUXIMAB [Suspect]
     Dosage: ONE DOSE - INFUSION
     Route: 065
  3. METHIMAZOLE [Concomitant]
     Indication: BASEDOW^S DISEASE
     Route: 065
  4. METHIMAZOLE [Concomitant]
     Route: 065
  5. METHIMAZOLE [Concomitant]
     Route: 065
  6. METHIMAZOLE [Concomitant]
     Route: 065
  7. PROPRANOLOL [Concomitant]
     Route: 065

REACTIONS (2)
  - Hyperthyroidism [Recovered/Resolved]
  - Exophthalmos [Recovered/Resolved]
